FAERS Safety Report 9540960 (Version 1)
Quarter: 2013Q3

REPORT INFORMATION
  Report Type: Spontaneous
  Country: US (occurrence: US)
  Receive Date: 20130921
  Receipt Date: 20130921
  Transmission Date: 20140515
  Serious: No
  Sender: FDA-Public Use
  Company Number: US-TEVA-432955USA

PATIENT
  Age: 78 Year
  Sex: Male
  Weight: 61.29 kg

DRUGS (2)
  1. QNASL [Suspect]
     Indication: CHRONIC SINUSITIS
     Dates: start: 201309
  2. ASTELIN [Concomitant]
     Indication: CHRONIC SINUSITIS

REACTIONS (2)
  - Eye pain [Not Recovered/Not Resolved]
  - Feeling hot [Not Recovered/Not Resolved]
